FAERS Safety Report 7060620-5 (Version None)
Quarter: 2010Q4

REPORT INFORMATION
  Report Type: 
  Country: None (occurrence: None)
  Receive Date: 20101025
  Receipt Date: 20101018
  Transmission Date: 20110411
  Serious: Yes (Life-Threatening, Hospitalization)
  Sender: FDA-Public Use
  Company Number: AT-ELI_LILLY_AND_COMPANY-AT201010000295

PATIENT
  Age: 43 Year
  Sex: Female

DRUGS (4)
  1. BYETTA [Suspect]
     Indication: TYPE 2 DIABETES MELLITUS
     Dosage: 10 UNK, UNK
     Dates: start: 20100917, end: 20100929
  2. DIAMICRON MR [Concomitant]
     Indication: TYPE 2 DIABETES MELLITUS
     Dosage: 30 MG, UNK
     Dates: start: 20041001
  3. GLUCOPHAGE [Concomitant]
     Dosage: 1 MG, UNK
     Dates: start: 20041001
  4. BEZAFIBRAT [Concomitant]
     Indication: HYPERLIPIDAEMIA
     Dosage: 400 MG, DAILY (1/D)
     Dates: start: 20061101

REACTIONS (3)
  - ANAPHYLACTIC SHOCK [None]
  - BLOOD GLUCOSE INCREASED [None]
  - MALAISE [None]
